FAERS Safety Report 18375569 (Version 1)
Quarter: 2020Q4

REPORT INFORMATION
  Report Type: Spontaneous
  Country: LV (occurrence: LV)
  Receive Date: 20201013
  Receipt Date: 20201013
  Transmission Date: 20210114
  Serious: Yes (Hospitalization, Other)
  Sender: FDA-Public Use
  Company Number: LV-ACCORD-204879

PATIENT
  Age: 53 Year
  Sex: Female

DRUGS (2)
  1. BENDAMUSTINE/BENDAMUSTINE HYDROCHLORIDE [Suspect]
     Active Substance: BENDAMUSTINE HYDROCHLORIDE
     Indication: NON-HODGKIN^S LYMPHOMA STAGE III
     Dosage: DECREASED DOSE OF 100 MG FOR THE LAST?COURSE WAS GIVEN DUE TO THROMBOCYTOPENIA
  2. RITUXIMAB. [Suspect]
     Active Substance: RITUXIMAB
     Indication: NON-HODGKIN^S LYMPHOMA STAGE III
     Dosage: TOTAL RECEIVED 6 COURSES
     Route: 042

REACTIONS (3)
  - JC virus infection [Unknown]
  - Progressive multifocal leukoencephalopathy [Unknown]
  - Thrombocytopenia [Unknown]

NARRATIVE: CASE EVENT DATE: 201906
